FAERS Safety Report 16859668 (Version 1)
Quarter: 2019Q3

REPORT INFORMATION
  Report Type: Spontaneous
  Country: TW (occurrence: TW)
  Receive Date: 20190927
  Receipt Date: 20190927
  Transmission Date: 20191005
  Serious: Yes (Hospitalization, Other)
  Sender: FDA-Public Use
  Company Number: TW-AMGEN-TWNSP2019157755

PATIENT
  Age: 79 Year
  Sex: Female

DRUGS (4)
  1. ENBREL [Suspect]
     Active Substance: ETANERCEPT
     Dosage: 25 MILLIGRAM, Q3W
     Route: 058
     Dates: start: 20161114
  2. ENBREL [Suspect]
     Active Substance: ETANERCEPT
     Indication: RHEUMATOID ARTHRITIS
     Dosage: 25 MILLIGRAM, BIW
     Route: 058
     Dates: start: 20110622, end: 20161114
  3. ARHEUMA [Concomitant]
     Dosage: 5 MILLIGRAM, DAILY
  4. GENIQUIN [Concomitant]
     Dosage: 100 MILLIGRAM, DAILY

REACTIONS (7)
  - Pelvic fracture [Not Recovered/Not Resolved]
  - Off label use [Unknown]
  - Haematuria [Not Recovered/Not Resolved]
  - Fall [Not Recovered/Not Resolved]
  - Urinary incontinence [Not Recovered/Not Resolved]
  - Urinary tract infection [Not Recovered/Not Resolved]
  - Gait inability [Not Recovered/Not Resolved]

NARRATIVE: CASE EVENT DATE: 20161114
